FAERS Safety Report 22344952 (Version 1)
Quarter: 2023Q2

REPORT INFORMATION
  Report Type: Spontaneous
  Country: IT (occurrence: IT)
  Receive Date: 20230519
  Receipt Date: 20230519
  Transmission Date: 20230721
  Serious: Yes (Hospitalization, Other)
  Sender: FDA-Public Use
  Company Number: IT-MLMSERVICE-20230504-4273534-1

PATIENT
  Age: 5 Year
  Sex: Male

DRUGS (2)
  1. PHENYTOIN [Interacting]
     Active Substance: PHENYTOIN
     Indication: Nervous system disorder prophylaxis
     Route: 042
  2. OMEPRAZOLE [Interacting]
     Active Substance: OMEPRAZOLE
     Indication: Prophylaxis
     Dosage: UNKNOWN
     Route: 065

REACTIONS (4)
  - Loss of consciousness [Recovering/Resolving]
  - Drug interaction [Recovering/Resolving]
  - Toxicity to various agents [Recovering/Resolving]
  - Drug level increased [Recovering/Resolving]
